FAERS Safety Report 9696861 (Version 2)
Quarter: 2015Q3

REPORT INFORMATION
  Report Type: Spontaneous
  Country: US (occurrence: US)
  Receive Date: 20131119
  Receipt Date: 20150803
  Transmission Date: 20151125
  Serious: No
  Sender: FDA-Public Use
  Company Number: US-GILEAD-2007-0013807

PATIENT
  Age: 14 Year
  Sex: Female
  Weight: 45.36 kg

DRUGS (7)
  1. LETAIRIS [Suspect]
     Active Substance: AMBRISENTAN
     Route: 048
     Dates: start: 20070803
  2. VENTAVIS [Concomitant]
     Active Substance: ILOPROST
     Route: 055
  3. FUROSEMIDE. [Concomitant]
     Active Substance: FUROSEMIDE
  4. LETAIRIS [Suspect]
     Active Substance: AMBRISENTAN
     Indication: PULMONARY ARTERIAL HYPERTENSION
     Route: 048
  5. EPIPEN [Concomitant]
     Active Substance: EPINEPHRINE
     Route: 030
  6. OXYGEN. [Concomitant]
     Active Substance: OXYGEN
     Dosage: AT BEDTIME
     Route: 045
  7. REVATIO [Concomitant]
     Active Substance: SILDENAFIL CITRATE
     Route: 048

REACTIONS (1)
  - Sinusitis [Unknown]
